FAERS Safety Report 5677185-2 (Version None)
Quarter: 2008Q1

REPORT INFORMATION
  Report Type: 
  Country: None (occurrence: None)
  Receive Date: 20080318
  Receipt Date: 20080311
  Transmission Date: 20080703
  Serious: Yes (Death, Hospitalization)
  Sender: FDA-Public Use
  Company Number: 083-C5013-08020121

PATIENT
  Age: 71 Year
  Sex: Female
  Weight: 48 kg

DRUGS (4)
  1. CC-5013 (LENALIDOMIDE) (CAPSULES) [Suspect]
     Indication: MULTIPLE MYELOMA
     Dosage: 10 MG, 21 DAY/MONTH, ORAL
     Route: 048
     Dates: start: 20071003, end: 20080123
  2. THALIDOMIDE (THALIDOMIIDE) [Suspect]
     Indication: MULTIPLE MYELOMA
     Dosage: 50 MG, DAILY, ORAL
     Route: 048
     Dates: start: 20071003, end: 20080130
  3. MELPHALAN (MELPHALAN) [Suspect]
     Indication: MULTIPLE MYELOMA
     Dosage: 8 MG, 4 DAY/MONTH, ORAL
     Route: 048
     Dates: start: 20071003, end: 20080106
  4. PREDNISONE TAB [Suspect]
     Indication: MULTIPLE MYELOMA
     Dosage: 100 MG, 4 DAY/MONTH, ORAL
     Route: 048
     Dates: start: 20071003, end: 20080106

REACTIONS (2)
  - BRONCHOPNEUMONIA [None]
  - DISEASE PROGRESSION [None]
